FAERS Safety Report 24726594 (Version 1)
Quarter: 2024Q4

REPORT INFORMATION
  Report Type: Report from Study
  Country: JP (occurrence: JP)
  Receive Date: 20241212
  Receipt Date: 20241212
  Transmission Date: 20250115
  Serious: Yes (Death, Hospitalization, Other)
  Sender: INSMED
  Company Number: JP-INSMED-2024-00084-JPAA

PATIENT
  Age: 73 Year
  Sex: Male

DRUGS (1)
  1. ARIKAYCE [Suspect]
     Active Substance: AMIKACIN
     Indication: Mycobacterium avium complex infection
     Dosage: UNK, UNK
     Route: 055
     Dates: start: 20240106, end: 20240625

REACTIONS (10)
  - Death [Fatal]
  - Pneumonia [Unknown]
  - Ageusia [Unknown]
  - Anosmia [Unknown]
  - Cough [Unknown]
  - Device maintenance issue [Unknown]
  - Wrong technique in device usage process [Unknown]
  - Accidental underdose [Unknown]
  - Therapy interrupted [Unknown]
  - Device issue [Unknown]

NARRATIVE: CASE EVENT DATE: 20240101
